FAERS Safety Report 12252496 (Version 1)
Quarter: 2016Q2

REPORT INFORMATION
  Report Type: Spontaneous
  Country: US (occurrence: US)
  Receive Date: 20160411
  Receipt Date: 20160411
  Transmission Date: 20160815
  Serious: No
  Sender: FDA-Public Use
  Company Number: US-009507513-1603USA009773

PATIENT
  Age: 28 Year
  Sex: Female
  Weight: 84.81 kg

DRUGS (1)
  1. NEXPLANON [Suspect]
     Active Substance: ETONOGESTREL
     Indication: CONTRACEPTION
     Dosage: DOSE/FREQUENCY: 1 ROD/3 YEARS
     Route: 059
     Dates: start: 20141007, end: 20160315

REACTIONS (3)
  - Device kink [Recovered/Resolved]
  - Device breakage [Recovered/Resolved]
  - Implant site irritation [Unknown]

NARRATIVE: CASE EVENT DATE: 20160315
